FAERS Safety Report 7603343-3 (Version None)
Quarter: 2011Q3

REPORT INFORMATION
  Report Type: 
  Country: None (occurrence: None)
  Receive Date: 20110712
  Receipt Date: 20110701
  Transmission Date: 20111222
  Serious: Yes (Hospitalization, Disabling, Other)
  Sender: FDA-Public Use
  Company Number: PHEH2004US02126

PATIENT
  Sex: Female

DRUGS (45)
  1. CENTRUM SILVER [Concomitant]
  2. LOTRIMIN [Concomitant]
  3. CATAPRES [Concomitant]
  4. THALIDOMIDE [Concomitant]
     Dosage: 100 MG, QD
     Dates: start: 20000101
  5. PREVACID [Concomitant]
  6. PHENERGAN ^WYETH-AYERST^ [Concomitant]
  7. ACYCLOVIR [Concomitant]
  8. FILGRASTIM [Concomitant]
  9. CULTURELLE [Concomitant]
  10. MELPHALAN HYDROCHLORIDE [Concomitant]
     Dates: start: 19980801, end: 19990501
  11. MORPHINE [Concomitant]
  12. NEURONTIN [Concomitant]
  13. CEFTAZIDIME [Concomitant]
  14. COZAAR [Concomitant]
  15. NORVASC [Concomitant]
  16. SYNTHROID [Concomitant]
  17. PREDNISONE [Concomitant]
     Dates: start: 19980801, end: 19990501
  18. VITAMIN B COMPLEX CAP [Concomitant]
  19. FERROUS SULFATE TAB [Concomitant]
  20. AREDIA [Suspect]
     Indication: MULTIPLE MYELOMA
     Dosage: 90 MG, QMO
     Route: 042
     Dates: start: 19970601, end: 20041001
  21. CALCIUM CITRATE [Concomitant]
     Dosage: 1200 MG, UNK
  22. ASPIRIN [Concomitant]
     Dosage: 81 MG, UNK
  23. STOOL SOFTENER [Concomitant]
  24. KAOPECTATE [Concomitant]
  25. MYCOSTATIN [Concomitant]
  26. MULTIVIT [Concomitant]
  27. ASCORBIC ACID [Concomitant]
  28. THALIDOMIDE [Concomitant]
     Dosage: 50 MG, QD
     Dates: start: 19990601, end: 20000101
  29. OMEPRAZOLE [Concomitant]
     Dosage: 20 MG, UNK
  30. VITAMIN B COMPLEX CAP [Concomitant]
  31. HYDROCORTISON                           /CZE/ [Concomitant]
  32. KAPIDEX [Concomitant]
  33. AREDIA [Suspect]
  34. TOPROL-XL [Concomitant]
     Dosage: 100 MG, QD
  35. FUROSEMIDE [Concomitant]
  36. THALIDOMIDE [Concomitant]
     Dosage: 100 MG, UNK
  37. LABETALOL HCL [Concomitant]
  38. REFRESH                            /00880201/ [Concomitant]
  39. SYSTANE (PROPYLENE GLYCOL/MACROGOL) [Concomitant]
  40. AUGMENTIN '125' [Concomitant]
  41. BENADRYL ^ACHE^ [Concomitant]
  42. PROTONIX [Concomitant]
     Dosage: 40 MG, QD
  43. INSULIN [Concomitant]
  44. RANITIDINE [Concomitant]
  45. ATIVAN [Concomitant]

REACTIONS (89)
  - VITREOUS FLOATERS [None]
  - DEVICE FAILURE [None]
  - NAUSEA [None]
  - STAPHYLOCOCCAL INFECTION [None]
  - CYSTITIS INTERSTITIAL [None]
  - TREMOR [None]
  - OSTEOMYELITIS CHRONIC [None]
  - OSTEOMALACIA [None]
  - CYSTOCELE [None]
  - DEHYDRATION [None]
  - HYPOAESTHESIA [None]
  - DYSPHAGIA [None]
  - SPINAL OSTEOARTHRITIS [None]
  - CATARACT [None]
  - OPTIC NERVE CUPPING [None]
  - VISION BLURRED [None]
  - VIITH NERVE PARALYSIS [None]
  - NEURALGIA [None]
  - BONE LESION [None]
  - SINUSITIS [None]
  - CHEST PAIN [None]
  - PANCYTOPENIA [None]
  - ECZEMA [None]
  - FEMORAL NECK FRACTURE [None]
  - JOINT DISLOCATION [None]
  - OEDEMA PERIPHERAL [None]
  - OBSTRUCTIVE AIRWAYS DISORDER [None]
  - HYPERGLYCAEMIA [None]
  - URGE INCONTINENCE [None]
  - SPONDYLOLISTHESIS [None]
  - MOUTH CYST [None]
  - JOINT EFFUSION [None]
  - ARTHRITIS [None]
  - NERVE ROOT LESION [None]
  - NECK PAIN [None]
  - MUSCULAR WEAKNESS [None]
  - MOVEMENT DISORDER [None]
  - DIARRHOEA [None]
  - SOFT TISSUE DISORDER [None]
  - MANDIBULAR PROSTHESIS USER [None]
  - FOREIGN BODY [None]
  - ENTEROCELE [None]
  - GRANULOMA [None]
  - RENAL FAILURE CHRONIC [None]
  - BUNDLE BRANCH BLOCK RIGHT [None]
  - MACULAR DEGENERATION [None]
  - DIABETES MELLITUS [None]
  - OSTEOARTHRITIS [None]
  - PLEURAL EFFUSION [None]
  - ROTATOR CUFF SYNDROME [None]
  - OSTEONECROSIS OF JAW [None]
  - PURULENT DISCHARGE [None]
  - PAIN IN JAW [None]
  - ATROPHIC VULVOVAGINITIS [None]
  - RECTOCELE [None]
  - HEADACHE [None]
  - CONTUSION [None]
  - OSTEOPOROSIS [None]
  - DYSPEPSIA [None]
  - PYREXIA [None]
  - BONE DISORDER [None]
  - TOOTH ABSCESS [None]
  - VOMITING [None]
  - NEUROPATHY PERIPHERAL [None]
  - INSOMNIA [None]
  - INCREASED VENTRICULAR AFTERLOAD [None]
  - RENAL OSTEODYSTROPHY [None]
  - RASH MACULO-PAPULAR [None]
  - NERVOUSNESS [None]
  - CERVICAL SPINAL STENOSIS [None]
  - DYSPNOEA EXERTIONAL [None]
  - FOOT DEFORMITY [None]
  - PAIN IN EXTREMITY [None]
  - FAECAL INCONTINENCE [None]
  - HERPES ZOSTER [None]
  - OSTEOPENIA [None]
  - SYNCOPE [None]
  - GROIN PAIN [None]
  - ARTERIOSCLEROSIS [None]
  - THROMBOCYTOPENIA [None]
  - MUSCLE SPASMS [None]
  - PNEUMONIA [None]
  - GASTROOESOPHAGEAL REFLUX DISEASE [None]
  - STRESS URINARY INCONTINENCE [None]
  - ANAEMIA [None]
  - TUBULOINTERSTITIAL NEPHRITIS [None]
  - FALL [None]
  - URINARY TRACT INFECTION [None]
  - PANCREATIC ATROPHY [None]
